FAERS Safety Report 16314684 (Version 1)
Quarter: 2019Q2

REPORT INFORMATION
  Report Type: Spontaneous
  Country: DK (occurrence: DK)
  Receive Date: 20190515
  Receipt Date: 20190515
  Transmission Date: 20190711
  Serious: Yes (Other)
  Sender: FDA-Public Use
  Company Number: DK-MYLANLABS-2017M1033028

PATIENT
  Sex: Female
  Weight: 83 kg

DRUGS (2)
  1. ACLASTA [Suspect]
     Active Substance: ZOLEDRONIC ACID
     Indication: OSTEOPOROSIS
     Dosage: 5 MILLIGRAM, QY (DOSIS: 5 MG/YEAR, STYRKE: 5 MG )
     Route: 042
     Dates: start: 20101111, end: 20161130
  2. ALENDRONATE [Suspect]
     Active Substance: ALENDRONATE SODIUM
     Indication: OSTEOPOROSIS
     Dosage: DOSIS: 70 MG/WEEK, STYRKE: 70 MG
     Route: 048
     Dates: start: 2002

REACTIONS (4)
  - Oral pain [Unknown]
  - Osteonecrosis of jaw [Recovered/Resolved]
  - Mouth swelling [Unknown]
  - Exposed bone in jaw [Unknown]

NARRATIVE: CASE EVENT DATE: 20170115
